FAERS Safety Report 22071671 (Version 1)
Quarter: 2023Q1

REPORT INFORMATION
  Report Type: Spontaneous
  Country: None (occurrence: FR)
  Receive Date: 20230307
  Receipt Date: 20230307
  Transmission Date: 20230418
  Serious: Yes (Death, Life-Threatening, Hospitalization, Other)
  Sender: FDA-Public Use
  Company Number: FR-B.Braun Medical Inc.-2138806

PATIENT
  Age: 74 Year
  Sex: Male

DRUGS (63)
  1. POTASSIUM CHLORIDE [Suspect]
     Active Substance: POTASSIUM CHLORIDE
  2. CALCIUM GLUCONATE [Suspect]
     Active Substance: CALCIUM GLUCONATE
  3. CALCIUM GLUCONATE [Suspect]
     Active Substance: CALCIUM GLUCONATE
  4. PROPOFOL [Suspect]
     Active Substance: PROPOFOL
  5. ACETAMINOPHEN [Suspect]
     Active Substance: ACETAMINOPHEN
     Dates: start: 20200719, end: 20200730
  6. MORPHINE SULFATE [Suspect]
     Active Substance: MORPHINE SULFATE
  7. LOVENOX [Suspect]
     Active Substance: ENOXAPARIN SODIUM
  8. ISUPREL [Suspect]
     Active Substance: ISOPROTERENOL HYDROCHLORIDE
  9. HYDROXYZINE [Suspect]
     Active Substance: HYDROXYZINE HYDROCHLORIDE
  10. CLONIDINE HYDROCHLORIDE [Suspect]
     Active Substance: CLONIDINE HYDROCHLORIDE
  11. THIAMINE HYDROCHLORIDE [Suspect]
     Active Substance: THIAMINE HYDROCHLORIDE
  12. IMODIUM [Suspect]
     Active Substance: LOPERAMIDE HYDROCHLORIDE
  13. PIPERACILLIN SODIUM\TAZOBACTAM SODIUM [Suspect]
     Active Substance: PIPERACILLIN SODIUM\TAZOBACTAM SODIUM
  14. NOREPINEPHRINE [Suspect]
     Active Substance: NOREPINEPHRINE
  15. IPRATROPIUM [Suspect]
     Active Substance: IPRATROPIUM
  16. AMIODARONE [Suspect]
     Active Substance: AMIODARONE
  17. SPIRAMYCIN [Suspect]
     Active Substance: SPIRAMYCIN
  18. DIAZEPAM [Suspect]
     Active Substance: DIAZEPAM
  19. CEFOTAXIME [Suspect]
     Active Substance: CEFOTAXIME SODIUM
  20. FENOTEROL\IPRATROPIUM [Suspect]
     Active Substance: FENOTEROL\IPRATROPIUM
  21. DIAMOX SEQUELS [Suspect]
     Active Substance: ACETAZOLAMIDE
  22. NIMBEX [Suspect]
     Active Substance: CISATRACURIUM BESYLATE
  23. INSULIN LISPRO [Suspect]
     Active Substance: INSULIN LISPRO
  24. POTASSIUM GLUCONATE [Suspect]
     Active Substance: POTASSIUM GLUCONATE
  25. ENOXAPARIN SODIUM [Suspect]
     Active Substance: ENOXAPARIN SODIUM
  26. LANSOPRAZOLE [Suspect]
     Active Substance: LANSOPRAZOLE
  27. POLYETHYLENE GLYCOLS [Suspect]
     Active Substance: POLYETHYLENE GLYCOLS
  28. SUFENTANIL CITRATE [Suspect]
     Active Substance: SUFENTANIL CITRATE
  29. URAPIDIL [Suspect]
     Active Substance: URAPIDIL
  30. MORPHINE HYDROCHLORIDE [Suspect]
     Active Substance: MORPHINE HYDROCHLORIDE
  31. RACECADOTRIL [Suspect]
     Active Substance: RACECADOTRIL
  32. THIAMINE HYDROCHLORIDE [Suspect]
     Active Substance: THIAMINE HYDROCHLORIDE
  33. SPIRAMYCIN [Suspect]
     Active Substance: SPIRAMYCIN
  34. HUMALOG [Suspect]
     Active Substance: INSULIN LISPRO
  35. ISOSORBIDE DINITRATE [Suspect]
     Active Substance: ISOSORBIDE DINITRATE
  36. LOPERAMIDE [Suspect]
     Active Substance: LOPERAMIDE
  37. CALCIUM PHOSPHATE, DIBASIC, ANHYDROUS\MAGNESIUM GLYCEROPHOSPHATE\PHOSP [Suspect]
     Active Substance: CALCIUM PHOSPHATE, DIBASIC, ANHYDROUS\MAGNESIUM GLYCEROPHOSPHATE\PHOSPHORIC ACID\SODIUM PHOSPHATE, D
  38. MIDAZOLAM [Suspect]
     Active Substance: MIDAZOLAM
  39. LORAZEPAM [Suspect]
     Active Substance: LORAZEPAM
  40. DUPHALAC [Suspect]
     Active Substance: LACTULOSE
  41. LORAZEPAM [Suspect]
     Active Substance: LORAZEPAM
  42. URAPIDIL [Suspect]
     Active Substance: URAPIDIL
  43. SERTRALINE [Suspect]
     Active Substance: SERTRALINE HYDROCHLORIDE
  44. FUROSEMIDE [Suspect]
     Active Substance: FUROSEMIDE
  45. OXAZEPAM [Suspect]
     Active Substance: OXAZEPAM
  46. POTASSIUM CHLORIDE [Suspect]
     Active Substance: POTASSIUM CHLORIDE
  47. METHYLPREDNISOLONE SODIUM SUCCINATE [Suspect]
     Active Substance: METHYLPREDNISOLONE SODIUM SUCCINATE
  48. REMIFENTANIL HYDROCHLORIDE [Suspect]
     Active Substance: REMIFENTANIL HYDROCHLORIDE
  49. OTILIMAB [Suspect]
     Active Substance: OTILIMAB
  50. OXAZEPAM [Suspect]
     Active Substance: OXAZEPAM
  51. DIAMOX SEQUELS [Suspect]
     Active Substance: ACETAZOLAMIDE
  52. SPIRAMYCIN [Suspect]
     Active Substance: SPIRAMYCIN
  53. NOREPINEPHRINE [Suspect]
     Active Substance: NOREPINEPHRINE
  54. DUPHALAC [Suspect]
     Active Substance: LACTULOSE
  55. CLONIDINE [Suspect]
     Active Substance: CLONIDINE
  56. ISOSORBIDE DINITRATE [Suspect]
     Active Substance: ISOSORBIDE DINITRATE
  57. THIAMINE HYDROCHLORIDE [Suspect]
     Active Substance: THIAMINE HYDROCHLORIDE
  58. SPIRAMYCIN [Suspect]
     Active Substance: SPIRAMYCIN
  59. POTASSIUM GLUCONATE [Concomitant]
     Active Substance: POTASSIUM GLUCONATE
  60. HYDROXYUREA [Concomitant]
     Active Substance: HYDROXYUREA
  61. KARDEGIC [Concomitant]
     Active Substance: ASPIRIN DL-LYSINE
  62. ATORVASTATIN [Concomitant]
     Active Substance: ATORVASTATIN
  63. AMIODARONE [Concomitant]
     Active Substance: AMIODARONE

REACTIONS (1)
  - Toxic epidermal necrolysis [Fatal]
